FAERS Safety Report 5713196-6 (Version None)
Quarter: 2008Q2

REPORT INFORMATION
  Report Type: 
  Country: None (occurrence: None)
  Receive Date: 20080422
  Receipt Date: 19950612
  Transmission Date: 20081010
  Serious: Yes (Death, Other)
  Sender: FDA-Public Use
  Company Number: FR-ROCHE-46752

PATIENT
  Sex: Male

DRUGS (1)
  1. GANCICLOVIR [Suspect]
     Route: 048
     Dates: start: 19950425, end: 19950508

REACTIONS (4)
  - CACHEXIA [None]
  - CRYPTOSPORIDIOSIS INFECTION [None]
  - DEATH [None]
  - ENCEPHALOPATHY [None]
